FAERS Safety Report 14547689 (Version 1)
Quarter: 2018Q1

REPORT INFORMATION
  Report Type: Report from Study
  Country: BR (occurrence: BR)
  Receive Date: 20180219
  Receipt Date: 20180219
  Transmission Date: 20180509
  Serious: Yes (Other)
  Sender: FDA-Public Use
  Company Number: BR-ROCHE-2072034

PATIENT

DRUGS (3)
  1. ENFUVIRTIDE. [Suspect]
     Active Substance: ENFUVIRTIDE
     Indication: ACQUIRED IMMUNODEFICIENCY SYNDROME
     Route: 042
  2. RITONAVIR. [Interacting]
     Active Substance: RITONAVIR
     Indication: ACQUIRED IMMUNODEFICIENCY SYNDROME
     Route: 048
  3. DARUNAVIR [Interacting]
     Active Substance: DARUNAVIR
     Indication: ACQUIRED IMMUNODEFICIENCY SYNDROME
     Route: 048

REACTIONS (3)
  - Immune reconstitution inflammatory syndrome [Unknown]
  - Drug interaction [Unknown]
  - Drug level increased [Unknown]
